FAERS Safety Report 9051052 (Version 2)
Quarter: 2013Q1

REPORT INFORMATION
  Report Type: Spontaneous
  Country: BE (occurrence: BE)
  Receive Date: 20130205
  Receipt Date: 20130214
  Transmission Date: 20140127
  Serious: Yes (Hospitalization)
  Sender: FDA-Public Use
  Company Number: PHHY2013BE010286

PATIENT
  Age: 56 None
  Sex: Female

DRUGS (9)
  1. GLIVEC [Suspect]
     Indication: GASTROINTESTINAL STROMAL TUMOUR
     Dosage: 400 MG, QD
     Route: 048
     Dates: start: 20120620, end: 20121120
  2. CETIRIZINE [Concomitant]
  3. TRAMADOL [Concomitant]
     Dosage: 150/100 MG ON ALTERNATE DAYS
  4. LASIX [Concomitant]
     Dosage: 20 MG, DAILY
  5. ELTHYRONE [Concomitant]
     Dosage: 150 UG, DAILY
  6. LACTOBACILLUS REUTERI [Concomitant]
  7. NOBITEN//NEBIVOLOL [Concomitant]
  8. ALLOPURINOL [Concomitant]
  9. CRESTOR [Concomitant]
     Dosage: 10 MG, UNK

REACTIONS (4)
  - Impaired healing [Recovered/Resolved with Sequelae]
  - Suture rupture [Recovered/Resolved with Sequelae]
  - Wound evisceration [Recovered/Resolved with Sequelae]
  - Suture related complication [Recovered/Resolved with Sequelae]
